FAERS Safety Report 18985498 (Version 3)
Quarter: 2021Q2

REPORT INFORMATION
  Report Type: Report from Study
  Country: US (occurrence: US)
  Receive Date: 20210309
  Receipt Date: 20210621
  Transmission Date: 20210717
  Serious: Yes (Other)
  Sender: FDA-Public Use
  Company Number: NVSC2021US045389

PATIENT
  Age: 59 Year
  Sex: Female
  Weight: 74.27 kg

DRUGS (9)
  1. TRAMADOL. [Concomitant]
     Active Substance: TRAMADOL
     Indication: PAIN
     Dosage: 300 G
     Route: 048
     Dates: start: 20200225
  2. ZYLOPRIM [Concomitant]
     Active Substance: ALLOPURINOL
     Indication: GOUT
     Dosage: 100 MG
     Route: 065
  3. PIQRAY [Suspect]
     Active Substance: ALPELISIB
     Dosage: 300 MG
     Route: 048
     Dates: start: 20210209
  4. PIQRAY [Suspect]
     Active Substance: ALPELISIB
     Dosage: 250 MG
     Route: 048
     Dates: start: 20210330
  5. ELAVIL [Concomitant]
     Active Substance: AMITRIPTYLINE HYDROCHLORIDE
     Indication: HEADACHE
     Dosage: 10 MG
     Route: 065
  6. PIQRAY [Suspect]
     Active Substance: ALPELISIB
     Indication: BREAST CANCER
     Dosage: UNK
     Route: 048
     Dates: start: 20210203
  7. ERGOCALCIFEROL. [Concomitant]
     Active Substance: ERGOCALCIFEROL
     Indication: HYPOVITAMINOSIS
     Dosage: UNK
     Route: 048
  8. FASLODEX [Concomitant]
     Active Substance: FULVESTRANT
     Indication: BREAST CANCER
     Dosage: 500 MG, 28D (SOLUTION)
     Route: 030
     Dates: start: 20210202
  9. VANTIN [Concomitant]
     Active Substance: CEFPODOXIME PROXETIL
     Indication: HYPERSENSITIVITY
     Dosage: 10 MG
     Route: 048

REACTIONS (6)
  - Pruritus [Unknown]
  - Asthenia [Recovered/Resolved]
  - Blood glucose increased [Recovering/Resolving]
  - Ill-defined disorder [Unknown]
  - Glycosylated haemoglobin increased [Unknown]
  - Nausea [Recovered/Resolved]

NARRATIVE: CASE EVENT DATE: 20210227
